FAERS Safety Report 11243247 (Version 1)
Quarter: 2015Q3

REPORT INFORMATION
  Report Type: Spontaneous
  Country: FR (occurrence: FR)
  Receive Date: 20150707
  Receipt Date: 20150707
  Transmission Date: 20151125
  Serious: Yes (Hospitalization)
  Sender: FDA-Public Use
  Company Number: FR-SA-2015SA095680

PATIENT
  Age: 85 Year
  Sex: Female

DRUGS (8)
  1. ATIVAN [Concomitant]
     Active Substance: LORAZEPAM
     Dosage: 10 MG
     Route: 048
  2. KARDEGIC [Concomitant]
     Active Substance: ASPIRIN LYSINE
     Dosage: 75 MG, POWDER FOR ORAL SOLUTION IN SACHET
     Route: 048
  3. LASILIX FABILE [Suspect]
     Active Substance: FUROSEMIDE
     Route: 048
     Dates: end: 20141222
  4. TRANSIPEG [Concomitant]
     Active Substance: POLYETHYLENE GLYCOL 3350
     Route: 048
  5. BACLOFEN. [Concomitant]
     Active Substance: BACLOFEN
     Route: 048
  6. EUPRESSYL [Concomitant]
     Active Substance: URAPIDIL
     Dosage: 30 MG
     Route: 048
  7. NAAXIA [Concomitant]
     Dosage: FORM: EYE DROPS
     Route: 047
  8. ARANESP [Concomitant]
     Active Substance: DARBEPOETIN ALFA
     Dosage: 40 MICROGRAMS, INJECTABLE SOLUTION IN VIAL

REACTIONS (5)
  - Hypernatraemia [Recovered/Resolved]
  - Aphasia [Recovered/Resolved]
  - Depressed level of consciousness [Recovered/Resolved]
  - Renal failure [Recovered/Resolved]
  - Dehydration [Recovered/Resolved]

NARRATIVE: CASE EVENT DATE: 20141205
